FAERS Safety Report 18196464 (Version 1)
Quarter: 2020Q3

REPORT INFORMATION
  Report Type: Spontaneous
  Country: US (occurrence: US)
  Receive Date: 20200825
  Receipt Date: 20200825
  Transmission Date: 20201103
  Serious: No
  Sender: FDA-Public Use
  Company Number: None

PATIENT
  Sex: Female

DRUGS (6)
  1. TEMOZOLOMIDE. [Suspect]
     Active Substance: TEMOZOLOMIDE
     Indication: RETROPERITONEAL CANCER
     Route: 048
     Dates: start: 20190717
  2. VOTRIENT [Concomitant]
     Active Substance: PAZOPANIB HYDROCHLORIDE
  3. XANAX [Concomitant]
     Active Substance: ALPRAZOLAM
  4. STIVARGA [Suspect]
     Active Substance: REGORAFENIB
  5. DULOXETINE. [Concomitant]
     Active Substance: DULOXETINE
  6. ZOFRAN [Concomitant]
     Active Substance: ONDANSETRON HYDROCHLORIDE

REACTIONS (2)
  - Gingival pain [None]
  - Drug ineffective [None]
